FAERS Safety Report 7548488-1 (Version None)
Quarter: 2011Q2

REPORT INFORMATION
  Report Type: 
  Country: None (occurrence: None)
  Receive Date: 20110615
  Receipt Date: 20090526
  Transmission Date: 20111010
  Serious: Yes (Death, Other)
  Sender: FDA-Public Use
  Company Number: US-BAYER-200923646NA

PATIENT
  Age: 72 Year
  Sex: Male
  Weight: 65.76 kg

DRUGS (21)
  1. NORVASC [Concomitant]
     Dosage: 5 MG, QD
     Route: 048
  2. CEFTRIAXONE [Concomitant]
     Dosage: 1 GM DAILY
     Route: 042
     Dates: start: 20070819
  3. MUCOMYST [Concomitant]
     Dosage: 1200 MG TWICE DAILY
     Route: 048
  4. METRONIDAZOLE [Concomitant]
     Dosage: 500 MG EVERY 8 HOURS
     Route: 048
     Dates: start: 20070824
  5. ACIPHEX [Concomitant]
     Dosage: 20 MG, QD
     Route: 048
  6. TRASYLOL [Suspect]
     Indication: HEART VALVE REPLACEMENT
     Route: 042
     Dates: start: 20071011
  7. PROTAMINE SULFATE [Concomitant]
     Dosage: 40 MG
     Route: 042
     Dates: start: 20071011, end: 20071011
  8. TRASYLOL [Suspect]
     Indication: ANGIOPLASTY
  9. TRASYLOL [Suspect]
     Indication: ENDARTERECTOMY
  10. TRASYLOL [Suspect]
     Indication: AORTIC VALVE REPLACEMENT
  11. ADVAIR DISKUS 100/50 [Concomitant]
     Dosage: 250/50 1 PUFF/TWICE DAILY
     Dates: start: 20030908
  12. LASIX [Concomitant]
     Dosage: 40 MG DAILY
     Route: 042
  13. VANCOMYCIN [Concomitant]
     Dosage: 250 MG EVERY 4 HOURS
     Route: 048
     Dates: start: 20070830
  14. AZITHROMYCIN [Concomitant]
     Dosage: 500 MG DAILY
     Route: 042
     Dates: start: 20070819
  15. TRASYLOL [Suspect]
     Indication: ANASTOMOTIC STENOSIS
  16. LANTUS [Concomitant]
     Dosage: 20 UNITS AT BEDTIME
     Route: 058
  17. HEPARIN [Concomitant]
     Dosage: 13,000 UNITS
     Route: 042
     Dates: start: 20071011, end: 20071011
  18. RED BLOOD CELLS [Concomitant]
     Dosage: 250CC
     Dates: start: 20071011
  19. XOPENEX [Concomitant]
     Dosage: 0.125 MG, TID
  20. ACETYLSALICYLIC ACID SRT [Concomitant]
     Dosage: 81 MG DAILY
     Route: 048
  21. CEFAZOLIN [Concomitant]
     Dosage: 2 GM
     Route: 042
     Dates: start: 20071011, end: 20071011

REACTIONS (13)
  - EMOTIONAL DISTRESS [None]
  - RENAL INJURY [None]
  - STRESS [None]
  - FEAR [None]
  - ANHEDONIA [None]
  - ANXIETY [None]
  - PAIN [None]
  - MULTI-ORGAN FAILURE [None]
  - RENAL FAILURE [None]
  - UNEVALUABLE EVENT [None]
  - INJURY [None]
  - RENAL IMPAIRMENT [None]
  - DEATH [None]
